FAERS Safety Report 9287212 (Version 1)
Quarter: 2013Q2

REPORT INFORMATION
  Report Type: Report from Study
  Country: DE (occurrence: DE)
  Receive Date: 20130513
  Receipt Date: 20130513
  Transmission Date: 20140414
  Serious: Yes (Other)
  Sender: FDA-Public Use
  Company Number: DE-ABBOTT-13P-062-1077860-00

PATIENT
  Age: 73 Year
  Sex: Male

DRUGS (2)
  1. LUPRON DEPOT [Suspect]
     Indication: PROSTATE CANCER
     Route: 058
     Dates: start: 20121119, end: 20130213
  2. ZOMETA [Concomitant]
     Indication: PRODUCT USED FOR UNKNOWN INDICATION

REACTIONS (5)
  - Prostate cancer [Unknown]
  - Tumour haemorrhage [Unknown]
  - Haematuria [Unknown]
  - Urinary retention [Unknown]
  - Drug ineffective [Unknown]
